FAERS Safety Report 7208542-0 (Version None)
Quarter: 2011Q1

REPORT INFORMATION
  Report Type: 
  Country: None (occurrence: None)
  Receive Date: 20110104
  Receipt Date: 20101206
  Transmission Date: 20110831
  Serious: No
  Sender: FDA-Public Use
  Company Number: US-BAYER-2010-004768

PATIENT
  Sex: Female

DRUGS (1)
  1. NEXAVAR [Suspect]
     Dosage: 400 MG, BID

REACTIONS (2)
  - CONTUSION [None]
  - FATIGUE [None]
